FAERS Safety Report 17365555 (Version 1)
Quarter: 2020Q1

REPORT INFORMATION
  Report Type: Spontaneous
  Country: DE (occurrence: DE)
  Receive Date: 20200204
  Receipt Date: 20200204
  Transmission Date: 20200409
  Serious: Yes (Hospitalization)
  Sender: FDA-Public Use
  Company Number: DE-TORRENT-00016719

PATIENT
  Age: 15 Year
  Sex: Female
  Weight: 40 kg

DRUGS (2)
  1. METHYLENEDIOXYMETHAMPHETAMINE [Interacting]
     Active Substance: MIDOMAFETAMINE
     Indication: PRODUCT USED FOR UNKNOWN INDICATION
     Dosage: UNKNOWN
     Route: 048
     Dates: start: 20190405, end: 20190405
  2. CETIRIZINE [Suspect]
     Active Substance: CETIRIZINE HYDROCHLORIDE
     Indication: HERPANGINA
     Route: 048
     Dates: start: 20190404

REACTIONS (4)
  - Toxicity to various agents [Unknown]
  - Electrocardiogram QT prolonged [Unknown]
  - Urine amphetamine positive [Unknown]
  - Drug interaction [Unknown]

NARRATIVE: CASE EVENT DATE: 20190405
